FAERS Safety Report 6888002-7 (Version None)
Quarter: 2010Q3

REPORT INFORMATION
  Report Type: 
  Country: None (occurrence: None)
  Receive Date: 20100730
  Receipt Date: 20100726
  Transmission Date: 20110219
  Serious: Yes (Congenital Anomaly)
  Sender: FDA-Public Use
  Company Number: A0872564A

PATIENT
  Sex: Male

DRUGS (7)
  1. COMBIVIR [Suspect]
     Indication: HIV INFECTION
     Dates: start: 20040121
  2. VIRAMUNE [Suspect]
     Indication: HIV INFECTION
     Dates: start: 20040121
  3. METRONIDAZOLE [Concomitant]
  4. IRON PREPARATION [Concomitant]
  5. MEBENDAZOLE [Concomitant]
  6. NYSTATIN [Concomitant]
  7. SECNIDAZOLE [Concomitant]

REACTIONS (3)
  - CONGENITAL CENTRAL NERVOUS SYSTEM ANOMALY [None]
  - DRUG EXPOSURE DURING PREGNANCY [None]
  - EXOMPHALOS [None]
